FAERS Safety Report 25691668 (Version 1)
Quarter: 2025Q3

REPORT INFORMATION
  Report Type: Spontaneous
  Country: EU (occurrence: EU)
  Receive Date: 20250818
  Receipt Date: 20250818
  Transmission Date: 20251020
  Serious: Yes (Life-Threatening, Hospitalization)
  Sender: MYLAN
  Company Number: None

PATIENT
  Age: 78 Year
  Sex: Male
  Weight: 65 kg

DRUGS (2)
  1. METOPROLOL [Interacting]
     Active Substance: METOPROLOL
     Indication: Cardiac failure
     Dosage: 25 MILLIGRAM, QD
     Dates: start: 20241118, end: 20250729
  2. SPIRONOLACTONE [Interacting]
     Active Substance: SPIRONOLACTONE
     Indication: Cardiac failure
     Dosage: 25 MILLIGRAM, QD
     Dates: start: 20241118, end: 20250604

REACTIONS (12)
  - Anxiety [Recovering/Resolving]
  - Feeling cold [Recovering/Resolving]
  - Syncope [Recovering/Resolving]
  - Depression [Recovering/Resolving]
  - Vomiting [Recovered/Resolved]
  - Fatigue [Recovering/Resolving]
  - Blood pressure decreased [Recovering/Resolving]
  - Bradycardia [Recovering/Resolving]
  - Dizziness [Recovered/Resolved]
  - Nausea [Recovered/Resolved]
  - Peripheral coldness [Recovering/Resolving]
  - Drug-disease interaction [Recovering/Resolving]

NARRATIVE: CASE EVENT DATE: 20241201
